FAERS Safety Report 10465544 (Version 1)
Quarter: 2014Q3

REPORT INFORMATION
  Report Type: Spontaneous
  Country: JP (occurrence: JP)
  Receive Date: 20140919
  Receipt Date: 20140919
  Transmission Date: 20150326
  Serious: Yes (Other)
  Sender: FDA-Public Use
  Company Number: JP-BAUSCH-BL-2014-005104

PATIENT
  Age: 72 Year
  Sex: Male

DRUGS (1)
  1. BRONUCK OPHTHALMIC SOLUTION 0.1% [Suspect]
     Active Substance: BROMFENAC SODIUM
     Indication: PRODUCT USED FOR UNKNOWN INDICATION
     Route: 047
     Dates: start: 20130311

REACTIONS (2)
  - Blepharitis [Recovering/Resolving]
  - Adenoviral conjunctivitis [Recovered/Resolved]

NARRATIVE: CASE EVENT DATE: 20130822
